FAERS Safety Report 7363301-3 (Version None)
Quarter: 2011Q1

REPORT INFORMATION
  Report Type: 
  Country: None (occurrence: None)
  Receive Date: 20110321
  Receipt Date: 20110308
  Transmission Date: 20110831
  Serious: Yes (Hospitalization)
  Sender: FDA-Public Use
  Company Number: US-JNJFOC-20080306185

PATIENT
  Sex: Female
  Weight: 40.5 kg

DRUGS (5)
  1. PREDNISONE [Concomitant]
  2. REMICADE [Suspect]
     Dosage: TOTAL 25 DOSES
     Route: 042
  3. REMICADE [Suspect]
     Indication: CROHN'S DISEASE
     Route: 042
  4. AMITRIPTYLINE [Concomitant]
  5. REMICADE [Suspect]
     Route: 042

REACTIONS (2)
  - CROHN'S DISEASE [None]
  - DEHYDRATION [None]
